FAERS Safety Report 8307914-0 (Version None)
Quarter: 2012Q2

REPORT INFORMATION
  Report Type: 
  Country: None (occurrence: None)
  Receive Date: 20120424
  Receipt Date: 20120416
  Transmission Date: 20120825
  Serious: Yes (Hospitalization)
  Sender: FDA-Public Use
  Company Number: US-FRI-1000029086

PATIENT
  Sex: Female

DRUGS (6)
  1. SAVELLA [Suspect]
     Indication: FIBROMYALGIA
     Dosage: 12.5 MG
     Route: 048
     Dates: start: 20110201, end: 20110201
  2. SAVELLA [Suspect]
     Dosage: 100 MG
     Route: 048
     Dates: start: 20110101, end: 20120406
  3. CYMBALTA [Concomitant]
     Dates: end: 20110101
  4. TOPAMAX [Concomitant]
     Indication: MIGRAINE
  5. SAVELLA [Suspect]
     Dosage: 25 MG
     Route: 048
     Dates: start: 20110201, end: 20110101
  6. SAVELLA [Suspect]
     Dosage: 50 MG
     Route: 048
     Dates: start: 20110101, end: 20110101

REACTIONS (1)
  - SIMPLE PARTIAL SEIZURES [None]
